FAERS Safety Report 9158591 (Version 1)
Quarter: 2013Q1

REPORT INFORMATION
  Report Type: Spontaneous
  Country: US (occurrence: US)
  Receive Date: 20130312
  Receipt Date: 20130312
  Transmission Date: 20140127
  Serious: Yes (Other)
  Sender: FDA-Public Use
  Company Number: US-PFIZER INC-2013070695

PATIENT
  Age: 42 Year
  Sex: Male

DRUGS (4)
  1. PHENYTOIN [Suspect]
     Indication: GRAND MAL CONVULSION
     Dosage: UNK
  2. PHENYTOIN [Suspect]
     Dosage: 200 TABLETS
  3. PRIMIDONE [Suspect]
     Indication: GRAND MAL CONVULSION
     Dosage: UNK
  4. PRIMIDONE [Suspect]
     Dosage: UNK

REACTIONS (2)
  - Intentional overdose [Unknown]
  - Suicide attempt [Unknown]
